FAERS Safety Report 8798462 (Version 1)
Quarter: 2012Q4

REPORT INFORMATION
  Report Type: 
  Country: FI (occurrence: FI)
  Receive Date: 20120920
  Receipt Date: 20120920
  Transmission Date: 20130627
  Serious: Yes (Other)
  Sender: FDA-Public Use
  Company Number: FI-PFIZER INC-2012229054

PATIENT
  Age: 81 Year
  Sex: Female

DRUGS (1)
  1. LYRICA [Suspect]
     Indication: NEURALGIA
     Dosage: 25 mg, 2x/day
     Dates: start: 2009

REACTIONS (10)
  - Acariasis [Unknown]
  - Diplopia [Recovering/Resolving]
  - Intervertebral disc protrusion [Unknown]
  - Cardiac disorder [Unknown]
  - Feeling abnormal [Unknown]
  - Eye pain [Recovering/Resolving]
  - Vision blurred [Recovering/Resolving]
  - Pain [Recovering/Resolving]
  - Dry eye [Recovering/Resolving]
  - Pain [Unknown]
